FAERS Safety Report 12545039 (Version 1)
Quarter: 2016Q3

REPORT INFORMATION
  Report Type: Report from Study
  Country: CA (occurrence: CA)
  Receive Date: 20160711
  Receipt Date: 20160711
  Transmission Date: 20161109
  Serious: Yes (Hospitalization)
  Sender: FDA-Public Use
  Company Number: CA-PFIZER INC-1528104

PATIENT
  Age: 60 Year
  Sex: Female

DRUGS (13)
  1. TRASTUZUMAB [Suspect]
     Active Substance: TRASTUZUMAB
     Dosage: UNK
     Dates: start: 20020403
  2. DOCETAXEL. [Suspect]
     Active Substance: DOCETAXEL
     Indication: BREAST CANCER
     Dosage: 134 MG, EVERY 3 WEEKS
     Dates: start: 20011228, end: 20020320
  3. TRASTUZUMAB [Suspect]
     Active Substance: TRASTUZUMAB
     Indication: BREAST CANCER
     Dosage: 292 MG, ONCE
     Route: 042
     Dates: start: 20011227, end: 20011227
  4. TRASTUZUMAB [Suspect]
     Active Substance: TRASTUZUMAB
     Dosage: 146 MG, UNK
     Dates: start: 20020327
  5. CARBOPLATIN. [Suspect]
     Active Substance: CARBOPLATIN
     Indication: BREAST CANCER
     Dosage: 564 MG, EVERY 3 WEEKS
     Dates: start: 20020320, end: 20020320
  6. HYDROCHLOROTHIAZIDE. [Concomitant]
     Active Substance: HYDROCHLOROTHIAZIDE
     Indication: PRODUCT USED FOR UNKNOWN INDICATION
     Dosage: NOT REPORTED,NOT REPORTED
  7. ZOCOR [Concomitant]
     Active Substance: SIMVASTATIN
     Dosage: NOT REPORTED,NOT REPORTED
  8. CARBOPLATIN. [Suspect]
     Active Substance: CARBOPLATIN
     Dosage: 549 MG, EVERY 3 WEEKS
     Dates: start: 20020227, end: 20020227
  9. CISPLATIN. [Suspect]
     Active Substance: CISPLATIN
     Indication: BREAST CANCER
     Dosage: 75 MG/M2, EVERY 3 WEEKS
     Dates: start: 20011228, end: 20020206
  10. TRASTUZUMAB [Suspect]
     Active Substance: TRASTUZUMAB
     Dosage: 146 MG, WEEKLY
     Route: 042
     Dates: start: 200201
  11. TRASTUZUMAB [Suspect]
     Active Substance: TRASTUZUMAB
     Dosage: UNK
     Dates: start: 20020320
  12. BENALAPRIL [Concomitant]
     Active Substance: ENALAPRIL MALEATE
     Dosage: UNK
  13. ZOLOFT [Concomitant]
     Active Substance: SERTRALINE HYDROCHLORIDE
     Dosage: UNK

REACTIONS (2)
  - Nervous system disorder [Recovered/Resolved with Sequelae]
  - Febrile neutropenia [Recovered/Resolved]

NARRATIVE: CASE EVENT DATE: 20020328
